FAERS Safety Report 17949387 (Version 1)
Quarter: 2020Q2

REPORT INFORMATION
  Report Type: Spontaneous
  Country: GB (occurrence: GB)
  Receive Date: 20200625
  Receipt Date: 20200625
  Transmission Date: 20200714
  Serious: Yes (Other)
  Sender: FDA-Public Use
  Company Number: NVSC2020GB171728

PATIENT
  Age: 21 Year
  Sex: Female

DRUGS (5)
  1. ONDANSETRON [Suspect]
     Active Substance: ONDANSETRON
     Indication: CHEMICAL SUBMISSION
     Dosage: UNK
     Route: 065
  2. PROPOFOL. [Suspect]
     Active Substance: PROPOFOL
     Indication: CHEMICAL SUBMISSION
     Dosage: UNK
     Route: 065
  3. CYCLIZINE LACTATE [Suspect]
     Active Substance: CYCLIZINE LACTATE
     Dosage: UNK
     Route: 065
  4. MIDAZOLAM. [Suspect]
     Active Substance: MIDAZOLAM
     Indication: CHEMICAL SUBMISSION
     Dosage: UNK
     Route: 065
  5. CYCLIZINE LACTATE [Suspect]
     Active Substance: CYCLIZINE LACTATE
     Indication: CHEMICAL SUBMISSION
     Dosage: UNK
     Route: 065
     Dates: start: 20181214

REACTIONS (1)
  - Intentional product misuse [Unknown]

NARRATIVE: CASE EVENT DATE: 20181214
